FAERS Safety Report 22331374 (Version 8)
Quarter: 2023Q4

REPORT INFORMATION
  Report Type: Spontaneous
  Country: JP (occurrence: JP)
  Receive Date: 20230517
  Receipt Date: 20231219
  Transmission Date: 20240110
  Serious: Yes (Death, Hospitalization, Other)
  Sender: FDA-Public Use
  Company Number: JP-GSKJP-JP2023JPN068886AA

PATIENT

DRUGS (14)
  1. DAPRODUSTAT [Suspect]
     Active Substance: DAPRODUSTAT
     Indication: Nephrogenic anaemia
     Dosage: 4 MG, 1D
     Route: 048
     Dates: start: 20210625, end: 20210706
  2. DAPRODUSTAT [Suspect]
     Active Substance: DAPRODUSTAT
     Dosage: 6 MG, 1D
     Route: 048
     Dates: start: 20210707, end: 20210913
  3. DAPRODUSTAT [Suspect]
     Active Substance: DAPRODUSTAT
     Dosage: 8 MG, 1D
     Route: 048
     Dates: start: 20210914, end: 20220412
  4. DAPRODUSTAT [Suspect]
     Active Substance: DAPRODUSTAT
     Dosage: 10 MG, 1D
     Route: 048
     Dates: start: 20220413, end: 20220510
  5. DAPRODUSTAT [Suspect]
     Active Substance: DAPRODUSTAT
     Dosage: 12 MG, 1D
     Route: 048
     Dates: start: 20220511, end: 20230228
  6. DAPRODUSTAT [Suspect]
     Active Substance: DAPRODUSTAT
     Dosage: 14 MG, 1D
     Route: 048
     Dates: start: 20230301, end: 20230426
  7. EPOETIN ALFA [Concomitant]
     Active Substance: ERYTHROPOIETIN
     Indication: Nephrogenic anaemia
     Dosage: 3000 IU, Q3W
     Dates: start: 202304, end: 2023
  8. LUNESTA [Concomitant]
     Active Substance: ESZOPICLONE
     Indication: Insomnia
     Dosage: 2 MG
     Route: 048
     Dates: start: 20230104
  9. LEVOCETIRIZINE HYDROCHLORIDE [Concomitant]
     Active Substance: LEVOCETIRIZINE HYDROCHLORIDE
     Indication: Pruritus
     Dosage: 5 MG
     Route: 048
     Dates: start: 20220406
  10. NALFURAFINE HYDROCHLORIDE [Concomitant]
     Active Substance: NALFURAFINE HYDROCHLORIDE
     Indication: Pruritus
     Dosage: 2.5 ?G
     Route: 048
     Dates: start: 20220406
  11. OLANZAPINE [Concomitant]
     Active Substance: OLANZAPINE
     Indication: Insomnia
     Dosage: 5 MG
     Route: 048
     Dates: start: 20220316
  12. HERBALS [Concomitant]
     Active Substance: HERBALS
     Indication: General physical health deterioration
     Dosage: 5 G
     Route: 048
     Dates: start: 20220316, end: 20220331
  13. FERRIC CITRATE ANHYDROUS [Concomitant]
     Active Substance: FERRIC CITRATE ANHYDROUS
     Indication: Iron deficiency anaemia
     Dosage: 500 MG, BID
     Route: 048
     Dates: start: 20220316
  14. CARBOHYDRATES\FATTY ACIDS\MINERALS\PROTEIN\VITAMINS [Concomitant]
     Active Substance: CARBOHYDRATES\FATTY ACIDS\MINERALS\PROTEIN\VITAMINS
     Indication: Malnutrition
     Dosage: 250 ML
     Route: 048
     Dates: start: 20230201, end: 20230331

REACTIONS (10)
  - Aortic valve stenosis [Fatal]
  - Cardiac failure [Fatal]
  - Aortic valve calcification [Fatal]
  - Haemodialysis [Fatal]
  - Fluid retention [Fatal]
  - Vascular calcification [Fatal]
  - Malnutrition [Unknown]
  - Oedema peripheral [Unknown]
  - Product use issue [Unknown]
  - Off label use [Unknown]

NARRATIVE: CASE EVENT DATE: 20230417
